FAERS Safety Report 9393636 (Version 2)
Quarter: 2013Q3

REPORT INFORMATION
  Report Type: Spontaneous
  Country: JP (occurrence: JP)
  Receive Date: 20130710
  Receipt Date: 20130723
  Transmission Date: 20140515
  Serious: Yes (Hospitalization)
  Sender: FDA-Public Use
  Company Number: JP-GLAXOSMITHKLINE-B0900952A

PATIENT
  Sex: Female
  Weight: 40 kg

DRUGS (11)
  1. VALTREX [Suspect]
     Indication: HERPES ZOSTER
     Route: 048
  2. ACTONEL [Concomitant]
     Indication: COMPRESSION FRACTURE
     Route: 048
  3. ONEALFA [Concomitant]
     Indication: COMPRESSION FRACTURE
     Dosage: .5MCG PER DAY
     Route: 048
  4. ATELEC [Concomitant]
     Route: 048
  5. CEPHADOL [Concomitant]
     Route: 048
  6. BAYASPIRIN [Concomitant]
     Route: 048
  7. MERISLON [Concomitant]
     Route: 048
  8. DEPAS [Concomitant]
     Route: 048
  9. DIOVAN [Concomitant]
     Route: 048
  10. OPALMON [Concomitant]
     Route: 048
  11. LIPITOR [Concomitant]
     Route: 048

REACTIONS (4)
  - Renal failure acute [Recovered/Resolved]
  - Blood creatinine increased [Recovered/Resolved]
  - Vomiting [Unknown]
  - General physical health deterioration [Unknown]
